FAERS Safety Report 9039431 (Version 1)
Quarter: 2013Q1

REPORT INFORMATION
  Report Type: Spontaneous
  Country: US (occurrence: US)
  Receive Date: 20130129
  Receipt Date: 20130129
  Transmission Date: 20140127
  Serious: No
  Sender: FDA-Public Use
  Company Number: US-009507513-1301USA012015

PATIENT
  Sex: Female

DRUGS (2)
  1. ASMANEX TWISTHALER [Suspect]
     Indication: ASTHMA
     Dosage: 220 MICROGRAM, UNK
     Route: 055
     Dates: start: 201209
  2. SINGULAIR [Concomitant]
     Dosage: UNK
     Route: 048

REACTIONS (5)
  - Peak expiratory flow rate decreased [Recovering/Resolving]
  - Drug ineffective [Unknown]
  - Lethargy [Recovering/Resolving]
  - Irritability [Recovering/Resolving]
  - Malaise [Recovering/Resolving]
